FAERS Safety Report 17973740 (Version 2)
Quarter: 2020Q3

REPORT INFORMATION
  Report Type: Spontaneous
  Country: IT (occurrence: IT)
  Receive Date: 20200702
  Receipt Date: 20200720
  Transmission Date: 20201103
  Serious: Yes (Disabling)
  Sender: FDA-Public Use
  Company Number: IT-TEVA-2020-IT-1794021

PATIENT
  Age: 62 Year
  Sex: Female

DRUGS (1)
  1. CISPLATINO SANDOZ [Suspect]
     Active Substance: CISPLATIN
     Indication: BILIARY NEOPLASM
     Dosage: 47 MG
     Route: 042
     Dates: start: 20200325, end: 20200506

REACTIONS (2)
  - Extremity necrosis [Not Recovered/Not Resolved]
  - Raynaud^s phenomenon [Not Recovered/Not Resolved]

NARRATIVE: CASE EVENT DATE: 20200515
